FAERS Safety Report 4922244-2 (Version None)
Quarter: 2006Q1

REPORT INFORMATION
  Report Type: 
  Country: None (occurrence: None)
  Receive Date: 20060224
  Receipt Date: 20050512
  Transmission Date: 20060701
  Serious: Yes (Hospitalization)
  Sender: FDA-Public Use
  Company Number: US-MERCK-0505USA01692

PATIENT
  Age: 39 Year
  Sex: Female
  Weight: 100 kg

DRUGS (4)
  1. VIOXX [Suspect]
     Indication: OSTEOARTHRITIS
     Route: 048
     Dates: start: 20000314, end: 20000615
  2. VIOXX [Suspect]
     Route: 048
     Dates: start: 20000615, end: 20001201
  3. CLARITIN [Concomitant]
     Route: 065
  4. MAXAIR [Concomitant]
     Route: 055

REACTIONS (5)
  - BLOOD CHOLESTEROL INCREASED [None]
  - CORONARY ARTERY DISSECTION [None]
  - CORONARY ARTERY OCCLUSION [None]
  - INSOMNIA [None]
  - MYOCARDIAL INFARCTION [None]
